FAERS Safety Report 6962711-3 (Version None)
Quarter: 2010Q3

REPORT INFORMATION
  Report Type: 
  Country: None (occurrence: None)
  Receive Date: 20100823
  Receipt Date: 20100702
  Transmission Date: 20110219
  Serious: Yes (Hospitalization)
  Sender: FDA-Public Use
  Company Number: 010285

PATIENT
  Sex: Male

DRUGS (6)
  1. CIMZIA [Suspect]
     Indication: CROHN'S DISEASE
     Dosage: (400 MG 1X/MONTH SUBCUTANEOUS)
     Route: 058
     Dates: start: 20090420
  2. AZATHIOPRINE [Concomitant]
  3. PENTASA [Concomitant]
  4. PRILOSEC [Concomitant]
  5. SLOW-FE /00023503/ [Concomitant]
  6. FOXAMAX [Concomitant]

REACTIONS (4)
  - DYSPEPSIA [None]
  - LUNG INFECTION [None]
  - SMALL INTESTINAL OBSTRUCTION [None]
  - SPLEEN DISORDER [None]
